FAERS Safety Report 9293978 (Version 1)
Quarter: 2013Q1

REPORT INFORMATION
  Report Type: Spontaneous
  Country: US (occurrence: None)
  Receive Date: 20121214
  Receipt Date: 20121214
  Transmission Date: 20140127
  Serious: Yes (Other)
  Sender: FDA-Public Use
  Company Number: 1208USA001271

PATIENT
  Sex: Male

DRUGS (1)
  1. JANUVIA(SITAGLIPTIN PHOSPHATE) FILM-COATED TABLET, 100 MG [Suspect]

REACTIONS (1)
  - Pancreatitis [None]
